FAERS Safety Report 4589165-9 (Version None)
Quarter: 2005Q1

REPORT INFORMATION
  Report Type: 
  Country: None (occurrence: None)
  Receive Date: 20050215
  Receipt Date: 20050215
  Transmission Date: 20050727
  Serious: No
  Sender: FDA-Public Use
  Company Number: None

PATIENT
  Age: 57 Year
  Sex: Male
  Weight: 71.6683 kg

DRUGS (1)
  1. AVASTIN [Suspect]
     Indication: RENAL CANCER METASTATIC
     Dosage: 700MG  Q 2 WEEKS INTRAVENOUS
     Route: 042
     Dates: start: 20041025, end: 20050118

REACTIONS (1)
  - BLOOD PRESSURE INCREASED [None]
